FAERS Safety Report 11386419 (Version 1)
Quarter: 2015Q3

REPORT INFORMATION
  Report Type: Spontaneous
  Country: US (occurrence: US)
  Receive Date: 20150811
  Receipt Date: 20150811
  Transmission Date: 20151125
  Serious: No
  Sender: FDA-Public Use
  Company Number: US-ELI_LILLY_AND_COMPANY-US201208001197

PATIENT
  Age: 45 Year
  Sex: Male

DRUGS (4)
  1. AXIRON [Suspect]
     Active Substance: TESTOSTERONE
     Indication: BLOOD TESTOSTERONE DECREASED
     Dosage: 60 MG, QD
  2. CLARITIN-D 12 HOUR [Concomitant]
     Active Substance: LORATADINE\PSEUDOEPHEDRINE SULFATE
  3. FIBRATE [Concomitant]
     Active Substance: UNSPECIFIED INGREDIENT
  4. AXIRON [Suspect]
     Active Substance: TESTOSTERONE
     Dosage: 30 MG, QD

REACTIONS (1)
  - Urinary retention [Unknown]
